FAERS Safety Report 5913071-8 (Version None)
Quarter: 2008Q4

REPORT INFORMATION
  Report Type: 
  Country: None (occurrence: None)
  Receive Date: 20081008
  Receipt Date: 20081008
  Transmission Date: 20090506
  Serious: No
  Sender: FDA-Public Use
  Company Number: None

PATIENT
  Age: 59 Year
  Sex: Male
  Weight: 79.3795 kg

DRUGS (1)
  1. CERTAIN DRI FEET - MOISTURE CONTROL PADS DSE HEALTHCARE SOLUTIONS LLC [Suspect]
     Indication: HYPERHIDROSIS
     Dosage: JULY, AUG, SEPT AT INTERVALS - 2008
     Dates: start: 20080101

REACTIONS (3)
  - CHEMICAL BURN OF SKIN [None]
  - RASH [None]
  - SKIN FISSURES [None]
